FAERS Safety Report 9653497 (Version 1)
Quarter: 2013Q4

REPORT INFORMATION
  Report Type: Spontaneous
  Country: US (occurrence: US)
  Receive Date: 20131029
  Receipt Date: 20131029
  Transmission Date: 20140711
  Serious: No
  Sender: FDA-Public Use
  Company Number: US-BIOGENIDEC-2013BI079351

PATIENT
  Age: 57 Year
  Sex: Female

DRUGS (7)
  1. TECFIDERA [Suspect]
     Indication: MULTIPLE SCLEROSIS
     Route: 048
     Dates: start: 201304, end: 20130813
  2. GABAPENTIN [Concomitant]
  3. CALCIUM CITRATE [Concomitant]
  4. VITAMIN D3 [Concomitant]
  5. B12 INJECTIONS [Concomitant]
  6. B COMPLEX WITH VITAMIN C [Concomitant]
  7. BIOTIN [Concomitant]

REACTIONS (4)
  - Urticaria [Not Recovered/Not Resolved]
  - Contusion [Not Recovered/Not Resolved]
  - Pruritus [Not Recovered/Not Resolved]
  - Flushing [Unknown]
